FAERS Safety Report 18869145 (Version 2)
Quarter: 2021Q1

REPORT INFORMATION
  Report Type: Report from Study
  Country: CA (occurrence: CA)
  Receive Date: 20210210
  Receipt Date: 20210215
  Transmission Date: 20210420
  Serious: Yes (Other)
  Sender: FDA-Public Use
  Company Number: CA-JNJFOC-20210202926

PATIENT
  Sex: Male
  Weight: 83.5 kg

DRUGS (1)
  1. REMICADE [Suspect]
     Active Substance: INFLIXIMAB
     Indication: ANKYLOSING SPONDYLITIS
     Dosage: DATE ALSO REPORTED AS 19?MAY?2015
     Route: 042
     Dates: start: 20150427

REACTIONS (6)
  - Localised oedema [Unknown]
  - Incorrect dose administered [Unknown]
  - Herpes zoster oticus [Recovering/Resolving]
  - Neck pain [Unknown]
  - Off label use [Unknown]
  - Incorrect drug administration rate [Unknown]

NARRATIVE: CASE EVENT DATE: 2016
